FAERS Safety Report 19480926 (Version 2)
Quarter: 2021Q3

REPORT INFORMATION
  Report Type: Report from Study
  Country: US (occurrence: US)
  Receive Date: 20210630
  Receipt Date: 20210705
  Transmission Date: 20211014
  Serious: Yes (Other)
  Sender: FDA-Public Use
  Company Number: US-BEH-2021133291

PATIENT
  Age: 54 Year
  Sex: Female
  Weight: 97.51 kg

DRUGS (1)
  1. HIZENTRA [Suspect]
     Active Substance: HUMAN IMMUNOGLOBULIN G
     Indication: MYASTHENIA GRAVIS
     Dosage: 20 GRAM, QW
     Route: 058
     Dates: start: 20210616, end: 20210623

REACTIONS (8)
  - Headache [Unknown]
  - Arthralgia [Unknown]
  - No adverse event [Unknown]
  - Myalgia [Unknown]
  - Off label use [Unknown]
  - Arthralgia [Unknown]
  - Myalgia [Unknown]
  - Headache [Unknown]

NARRATIVE: CASE EVENT DATE: 20210616
